FAERS Safety Report 8417986-0 (Version None)
Quarter: 2012Q2

REPORT INFORMATION
  Report Type: 
  Country: None (occurrence: None)
  Receive Date: 20120531
  Receipt Date: 20120523
  Transmission Date: 20120825
  Serious: Yes (Other)
  Sender: FDA-Public Use
  Company Number: NSR_00559_2012

PATIENT
  Age: 37 Year
  Sex: Female
  Weight: 74.8435 kg

DRUGS (4)
  1. XANAX [Concomitant]
  2. AMBIEN [Concomitant]
  3. FLUOXETINE [Suspect]
     Indication: DEPRESSION
     Dosage: (60 MG, THREE CAPSULES DAILY ORAL)
     Route: 048
     Dates: start: 20120507
  4. FLUOXETINE [Suspect]
     Indication: ANXIETY
     Dosage: (60 MG, THREE CAPSULES DAILY ORAL)
     Route: 048
     Dates: start: 20120507

REACTIONS (7)
  - ABNORMAL BEHAVIOUR [None]
  - PRODUCT FORMULATION ISSUE [None]
  - MOOD SWINGS [None]
  - DECREASED INTEREST [None]
  - DEPRESSION [None]
  - FATIGUE [None]
  - THERAPEUTIC RESPONSE DECREASED [None]
